FAERS Safety Report 14020402 (Version 4)
Quarter: 2017Q4

REPORT INFORMATION
  Report Type: Report from Study
  Country: FR (occurrence: FR)
  Receive Date: 20170928
  Receipt Date: 20171124
  Transmission Date: 20180321
  Serious: Yes (Life-Threatening, Hospitalization, Other)
  Sender: FDA-Public Use
  Company Number: FR-BRISTOL-MYERS SQUIBB COMPANY-BMS-2017-086303

PATIENT
  Age: 81 Year
  Sex: Male

DRUGS (8)
  1. TAMSULOSIN HYDROCHLORIDE. [Concomitant]
     Active Substance: TAMSULOSIN HYDROCHLORIDE
     Indication: PRODUCT USED FOR UNKNOWN INDICATION
     Dosage: 0.4 MG, UNK
     Route: 065
  2. CO-RENITEC [Concomitant]
     Active Substance: ENALAPRIL\HYDROCHLOROTHIAZIDE
     Indication: HYPERTENSION
     Dosage: 1 DF, QD
     Route: 065
     Dates: start: 1990
  3. BACLOFEN. [Concomitant]
     Active Substance: BACLOFEN
     Indication: MUSCLE RELAXANT THERAPY
     Dosage: 10 MG, QD
     Route: 065
     Dates: start: 2017
  4. ENTECAVIR. [Suspect]
     Active Substance: ENTECAVIR
     Indication: HEPATITIS B
     Dosage: 0.5 MG, UNK
     Route: 065
     Dates: start: 20170406
  5. LANTUS [Concomitant]
     Active Substance: INSULIN GLARGINE
     Indication: TYPE 1 DIABETES MELLITUS
     Dosage: 100 IU/ML, QD
     Route: 065
     Dates: start: 2017
  6. VESICARE [Concomitant]
     Active Substance: SOLIFENACIN SUCCINATE
     Indication: URINARY TRACT DISORDER
     Dosage: 5 MG, QD
     Route: 065
     Dates: start: 2015
  7. NOVORAPID [Concomitant]
     Active Substance: INSULIN ASPART
     Indication: TYPE 1 DIABETES MELLITUS
     Dosage: 100 IU/ML, QD
     Route: 065
     Dates: start: 2017
  8. PAROXETINE. [Concomitant]
     Active Substance: PAROXETINE
     Indication: PRODUCT USED FOR UNKNOWN INDICATION
     Dosage: 20 MG, UNK
     Route: 065

REACTIONS (15)
  - Pseudomonal sepsis [Recovering/Resolving]
  - Jaundice [Unknown]
  - Urinary tract infection [Unknown]
  - Weight decreased [Unknown]
  - Haematemesis [Recovering/Resolving]
  - Cholangitis [Unknown]
  - General physical health deterioration [Unknown]
  - Malignant peritoneal neoplasm [Unknown]
  - Diverticulitis [Unknown]
  - Hiatus hernia [Unknown]
  - Gastrointestinal haemorrhage [Recovering/Resolving]
  - Adenocarcinoma pancreas [Not Recovered/Not Resolved]
  - Anaemia [Unknown]
  - Device related infection [Unknown]
  - Jaundice cholestatic [Unknown]

NARRATIVE: CASE EVENT DATE: 20170517
